FAERS Safety Report 5511183-4 (Version None)
Quarter: 2007Q4

REPORT INFORMATION
  Report Type: 
  Country: None (occurrence: None)
  Receive Date: 20071109
  Receipt Date: 20071101
  Transmission Date: 20080405
  Serious: Yes (Hospitalization, Other)
  Sender: FDA-Public Use
  Company Number: US-ELI_LILLY_AND_COMPANY-US200710002279

PATIENT
  Sex: Male
  Weight: 84.336 kg

DRUGS (27)
  1. ALIMTA [Suspect]
     Indication: NON-SMALL CELL LUNG CANCER
     Dosage: 1000 MG, UNK
     Dates: start: 20070717, end: 20070828
  2. VITAMIN B-12 [Concomitant]
     Dosage: 1000 UG, MONTHLY (1/M)
     Route: 030
     Dates: start: 20070717
  3. FOLIC ACID [Concomitant]
     Dosage: 1 MG, DAILY (1/D)
  4. ZOFRAN [Concomitant]
     Dosage: UNK, AS NEEDED
  5. DEPAKOTE [Concomitant]
  6. DURAGESIC-100 [Concomitant]
     Dosage: 50 UG, OTHER
     Route: 062
  7. PAXIL [Concomitant]
     Dosage: 20 MG, DAILY (1/D)
     Route: 048
  8. BUSPAR [Concomitant]
     Dosage: 30 MG, 2/D
     Dates: end: 20070101
  9. LEVAQUIN [Concomitant]
     Dosage: 500 MG, DAILY (1/D)
  10. ALEVE [Concomitant]
     Dosage: UNK, UNK
     Dates: end: 20070906
  11. DIOVAN /01319601/ [Concomitant]
     Dosage: 160 MG, DAILY (1/D)
     Dates: end: 20070906
  12. HYDROCHLOROTHIAZIDE [Concomitant]
     Dosage: 25 MG, DAILY (1/D)
     Route: 048
     Dates: end: 20070906
  13. HYDROCHLOROTHIAZIDE [Concomitant]
     Dosage: 25 MG, DAILY (1/D)
     Route: 048
     Dates: start: 20070101
  14. CARDIZEM [Concomitant]
     Dosage: 240 MG, DAILY (1/D)
     Route: 048
     Dates: end: 20070906
  15. CARDIZEM [Concomitant]
     Dosage: 240 MG, DAILY (1/D)
     Route: 048
     Dates: start: 20070101
  16. ASPIRIN [Concomitant]
     Dosage: 81 MG, OTHER
     Route: 048
     Dates: end: 20070906
  17. ASPIRIN [Concomitant]
     Dosage: 81 MG, OTHER
     Route: 048
     Dates: start: 20070101
  18. TRICOR [Concomitant]
     Dosage: 600 MG, 2/D
     Dates: end: 20070906
  19. HYDROCODONE BITARTRATE + ACETAMINOPHEN [Concomitant]
     Indication: PAIN
     Dosage: UNK, OTHER
     Route: 048
  20. DOCUSATE SODIUM [Concomitant]
     Indication: CONSTIPATION
     Dosage: 100 MG, OTHER
     Route: 048
     Dates: end: 20070906
  21. DOCUSATE SODIUM [Concomitant]
     Dosage: 100 MG, OTHER
     Route: 048
     Dates: start: 20070101
  22. SENOKOT [Concomitant]
     Dosage: UNK, AS NEEDED
     Dates: end: 20070906
  23. SENOKOT [Concomitant]
     Dosage: UNK, AS NEEDED
     Dates: start: 20070101
  24. GLYCOLAX [Concomitant]
     Indication: CONSTIPATION
     Dosage: UNK, OTHER
     Route: 048
     Dates: end: 20070906
  25. GLYCOLAX [Concomitant]
     Dosage: UNK, OTHER
     Route: 048
     Dates: start: 20070101
  26. PROCRIT [Concomitant]
     Indication: PANCYTOPENIA
     Dates: start: 20070101
  27. GEMFIBROZIL [Concomitant]
     Dosage: 600 MG, DAILY (1/D)
     Route: 048

REACTIONS (24)
  - ANAEMIA [None]
  - AORTIC DISORDER [None]
  - ASTHENIA [None]
  - CARDIOMEGALY [None]
  - CHEST X-RAY ABNORMAL [None]
  - CHOLELITHIASIS [None]
  - DEAFNESS [None]
  - DIARRHOEA [None]
  - DRUG HYPERSENSITIVITY [None]
  - ENTERITIS [None]
  - HYPOTENSION [None]
  - HYPOVOLAEMIA [None]
  - INGROWING NAIL [None]
  - INTESTINAL ISCHAEMIA [None]
  - LIMB DISCOMFORT [None]
  - LUNG CONSOLIDATION [None]
  - METABOLIC ACIDOSIS [None]
  - NAUSEA [None]
  - NEPHROLITHIASIS [None]
  - ONYCHOMYCOSIS [None]
  - PANCYTOPENIA [None]
  - RENAL FAILURE ACUTE [None]
  - SMALL INTESTINAL OBSTRUCTION [None]
  - VOMITING [None]
